FAERS Safety Report 8829130 (Version 2)
Quarter: 2012Q4

REPORT INFORMATION
  Report Type: 
  Country: US (occurrence: US)
  Receive Date: 20121008
  Receipt Date: 20121108
  Transmission Date: 20130627
  Serious: Yes (Other)
  Sender: FDA-Public Use
  Company Number: CHPA2012US010684

PATIENT
  Sex: Female

DRUGS (1)
  1. GAS-X [Suspect]
     Indication: FLATULENCE
     Dosage: 1 DF, ONCE/SINGLE (on 2 occasions)
     Route: 048
     Dates: end: 20120507

REACTIONS (3)
  - Gout [Not Recovered/Not Resolved]
  - Expired drug administered [Unknown]
  - Underdose [Unknown]
